FAERS Safety Report 20742819 (Version 1)
Quarter: 2022Q2

REPORT INFORMATION
  Report Type: Report from Study
  Country: US (occurrence: US)
  Receive Date: 20220424
  Receipt Date: 20220424
  Transmission Date: 20220721
  Serious: Yes (Hospitalization)
  Sender: FDA-Public Use
  Company Number: US-ABBVIE-22K-163-4367996-00

PATIENT
  Sex: Male

DRUGS (1)
  1. VENCLEXTA [Suspect]
     Active Substance: VENETOCLAX
     Indication: Non-Hodgkin^s lymphoma
     Route: 048
     Dates: start: 20210319

REACTIONS (5)
  - Cardiac failure [Unknown]
  - Pneumonia [Unknown]
  - Non-Hodgkin^s lymphoma [Unknown]
  - General physical health deterioration [Unknown]
  - Asthenia [Unknown]
